FAERS Safety Report 16859700 (Version 2)
Quarter: 2019Q4

REPORT INFORMATION
  Report Type: Spontaneous
  Country: IE (occurrence: IE)
  Receive Date: 20190927
  Receipt Date: 20191015
  Transmission Date: 20200122
  Serious: Yes (Other)
  Sender: FDA-Public Use
  Company Number: IE-BIOGEN-2019BI00789647

PATIENT
  Age: 58 Year
  Sex: Female

DRUGS (2)
  1. SYMMETREL (GENERIC) [Concomitant]
     Indication: FATIGUE
     Dosage: ONGOING TREATMENT, PATIENT HAS BEEN TAKING SYMMETREL SINCE AT LEAST 2012
     Route: 065
     Dates: start: 2012
  2. FAMPYRA [Suspect]
     Active Substance: DALFAMPRIDINE
     Indication: GAIT DISTURBANCE
     Route: 048
     Dates: start: 20190818, end: 20190826

REACTIONS (6)
  - Tongue biting [Recovered/Resolved]
  - Urinary tract infection [Recovered/Resolved]
  - Urinary incontinence [Recovered/Resolved]
  - Abnormal sleep-related event [Recovered/Resolved]
  - Amnesia [Recovered/Resolved]
  - Seizure [Recovered/Resolved]

NARRATIVE: CASE EVENT DATE: 201908
